FAERS Safety Report 6759991-6 (Version None)
Quarter: 2010Q2

REPORT INFORMATION
  Report Type: 
  Country: None (occurrence: None)
  Receive Date: 20100608
  Receipt Date: 20100302
  Transmission Date: 20101027
  Serious: Yes (Hospitalization)
  Sender: FDA-Public Use
  Company Number: JP-SANOFI-AVENTIS-200812943JP

PATIENT
  Age: 74 Year
  Sex: Male
  Weight: 52 kg

DRUGS (151)
  1. AFLIBERCEPT [Suspect]
     Route: 041
     Dates: start: 20080814
  2. DOCETAXEL [Suspect]
     Route: 041
     Dates: start: 20080814
  3. PRIMPERAN TAB [Concomitant]
     Dates: start: 20080704, end: 20080906
  4. PRIMPERAN TAB [Concomitant]
     Dates: start: 20081004, end: 20081004
  5. PRIMPERAN TAB [Concomitant]
     Dates: start: 20081008, end: 20081109
  6. PRIMPERAN TAB [Concomitant]
     Route: 042
     Dates: start: 20081212, end: 20081214
  7. PRIMPERAN TAB [Concomitant]
     Route: 048
     Dates: start: 20081213, end: 20090112
  8. PRIMPERAN TAB [Concomitant]
     Route: 048
     Dates: start: 20090118, end: 20090504
  9. PRIMPERAN TAB [Concomitant]
     Route: 042
     Dates: start: 20090124, end: 20090125
  10. PRIMPERAN TAB [Concomitant]
     Route: 042
     Dates: start: 20090403, end: 20090404
  11. PRIMPERAN TAB [Concomitant]
     Route: 042
     Dates: start: 20090516
  12. PRIMPERAN TAB [Concomitant]
     Route: 048
     Dates: start: 20090510
  13. KETOPROFEN [Concomitant]
     Dates: start: 20080531, end: 20080613
  14. KETOPROFEN [Concomitant]
     Dates: start: 20080619, end: 20080701
  15. KETOPROFEN [Concomitant]
     Dates: start: 20080725, end: 20080729
  16. KETOPROFEN [Concomitant]
     Dates: start: 20080811, end: 20080905
  17. KETOPROFEN [Concomitant]
     Dates: start: 20090113
  18. ISODINE [Concomitant]
     Dates: start: 20080730, end: 20080920
  19. ISODINE [Concomitant]
     Dates: start: 20081008, end: 20081013
  20. ISODINE [Concomitant]
     Dates: start: 20081015, end: 20081205
  21. ISODINE [Concomitant]
     Dates: start: 20081227
  22. HACHIAZULE [Concomitant]
     Dates: start: 20080606, end: 20080613
  23. HACHIAZULE [Concomitant]
     Dates: start: 20080627, end: 20080730
  24. HACHIAZULE [Concomitant]
     Dates: start: 20080817, end: 20080826
  25. HACHIAZULE [Concomitant]
     Dates: start: 20080906, end: 20081007
  26. HACHIAZULE [Concomitant]
     Dates: start: 20081014, end: 20081014
  27. HACHIAZULE [Concomitant]
     Dates: start: 20081025, end: 20081123
  28. HACHIAZULE [Concomitant]
     Dates: start: 20081205
  29. PRAVASTATIN SODIUM [Concomitant]
     Dates: start: 19990101, end: 20080614
  30. RANITIDINE HYDROCHLORIDE [Concomitant]
     Dates: start: 20080526, end: 20080608
  31. RANITIDINE HYDROCHLORIDE [Concomitant]
     Dates: start: 20080617, end: 20080624
  32. RANITIDINE HYDROCHLORIDE [Concomitant]
     Dates: start: 20080715, end: 20080721
  33. RANITIDINE HYDROCHLORIDE [Concomitant]
     Dates: start: 20080813, end: 20080820
  34. RANITIDINE HYDROCHLORIDE [Concomitant]
     Dates: start: 20080923, end: 20080930
  35. RANITIDINE HYDROCHLORIDE [Concomitant]
     Dates: start: 20081028, end: 20081104
  36. RANITIDINE HYDROCHLORIDE [Concomitant]
     Dates: start: 20081202, end: 20081209
  37. RANITIDINE HYDROCHLORIDE [Concomitant]
     Dates: start: 20090113, end: 20090120
  38. RANITIDINE HYDROCHLORIDE [Concomitant]
     Dates: start: 20090217, end: 20090224
  39. RANITIDINE HYDROCHLORIDE [Concomitant]
     Dates: start: 20090324, end: 20090331
  40. RANITIDINE HYDROCHLORIDE [Concomitant]
     Dates: start: 20090507, end: 20090514
  41. DEXAMETHASONE [Concomitant]
     Route: 048
     Dates: start: 20080526, end: 20080526
  42. DEXAMETHASONE [Concomitant]
     Route: 048
     Dates: start: 20080527, end: 20080527
  43. DEXAMETHASONE [Concomitant]
     Route: 048
     Dates: start: 20080527, end: 20080527
  44. DEXAMETHASONE [Concomitant]
     Route: 048
     Dates: start: 20080528, end: 20080528
  45. DEXAMETHASONE [Concomitant]
     Dates: start: 20080607, end: 20080616
  46. DEXAMETHASONE [Concomitant]
     Route: 048
     Dates: start: 20080617, end: 20080617
  47. DEXAMETHASONE [Concomitant]
     Route: 048
     Dates: start: 20080618, end: 20080618
  48. DEXAMETHASONE [Concomitant]
     Route: 048
     Dates: start: 20080618, end: 20080618
  49. DEXAMETHASONE [Concomitant]
     Route: 048
     Dates: start: 20080619, end: 20080619
  50. DEXAMETHASONE [Concomitant]
     Dates: start: 20080625, end: 20080701
  51. DEXAMETHASONE [Concomitant]
     Route: 048
     Dates: start: 20080715, end: 20080715
  52. DEXAMETHASONE [Concomitant]
     Route: 048
     Dates: start: 20080716, end: 20080716
  53. DEXAMETHASONE [Concomitant]
     Route: 048
     Dates: start: 20080716, end: 20080716
  54. DEXAMETHASONE [Concomitant]
     Route: 048
     Dates: start: 20080717, end: 20080717
  55. DEXAMETHASONE [Concomitant]
     Route: 048
     Dates: start: 20080813, end: 20080813
  56. DEXAMETHASONE [Concomitant]
     Route: 048
     Dates: start: 20080814, end: 20080814
  57. DEXAMETHASONE [Concomitant]
     Route: 048
     Dates: start: 20080814, end: 20080814
  58. DEXAMETHASONE [Concomitant]
     Route: 048
     Dates: start: 20080815, end: 20080815
  59. DEXAMETHASONE [Concomitant]
     Route: 048
     Dates: start: 20080923, end: 20080923
  60. DEXAMETHASONE [Concomitant]
     Route: 048
     Dates: start: 20080924, end: 20080924
  61. DEXAMETHASONE [Concomitant]
     Route: 048
     Dates: start: 20080924, end: 20080924
  62. DEXAMETHASONE [Concomitant]
     Route: 048
     Dates: start: 20080925, end: 20080925
  63. DEXAMETHASONE [Concomitant]
     Route: 048
     Dates: start: 20081028, end: 20081028
  64. DEXAMETHASONE [Concomitant]
     Route: 048
     Dates: start: 20081029, end: 20081029
  65. DEXAMETHASONE [Concomitant]
     Route: 048
     Dates: start: 20081029, end: 20081029
  66. DEXAMETHASONE [Concomitant]
     Route: 048
     Dates: start: 20081030, end: 20081030
  67. DEXAMETHASONE [Concomitant]
     Route: 048
     Dates: start: 20081202, end: 20081202
  68. DEXAMETHASONE [Concomitant]
     Route: 048
     Dates: start: 20081203, end: 20081203
  69. DEXAMETHASONE [Concomitant]
     Route: 048
     Dates: start: 20081203, end: 20081203
  70. DEXAMETHASONE [Concomitant]
     Route: 048
     Dates: start: 20081204, end: 20081204
  71. DEXAMETHASONE [Concomitant]
     Dates: start: 20081212, end: 20081212
  72. DEXAMETHASONE [Concomitant]
     Route: 048
     Dates: start: 20090113, end: 20090113
  73. DEXAMETHASONE [Concomitant]
     Route: 048
     Dates: start: 20090114, end: 20090114
  74. DEXAMETHASONE [Concomitant]
     Route: 048
     Dates: start: 20090114, end: 20090114
  75. DEXAMETHASONE [Concomitant]
     Route: 048
     Dates: start: 20090115, end: 20090115
  76. DEXAMETHASONE [Concomitant]
     Route: 048
     Dates: start: 20090217, end: 20090217
  77. DEXAMETHASONE [Concomitant]
     Route: 048
     Dates: start: 20090218, end: 20090218
  78. DEXAMETHASONE [Concomitant]
     Route: 048
     Dates: start: 20090218, end: 20090218
  79. DEXAMETHASONE [Concomitant]
     Route: 048
     Dates: start: 20090219, end: 20090219
  80. DEXAMETHASONE [Concomitant]
     Route: 048
     Dates: start: 20090324, end: 20090324
  81. DEXAMETHASONE [Concomitant]
     Route: 048
     Dates: start: 20090325, end: 20090325
  82. DEXAMETHASONE [Concomitant]
     Route: 048
     Dates: start: 20090325, end: 20090325
  83. DEXAMETHASONE [Concomitant]
     Route: 048
     Dates: start: 20090326, end: 20090326
  84. DEXAMETHASONE [Concomitant]
     Route: 048
     Dates: start: 20090507, end: 20090507
  85. DEXAMETHASONE [Concomitant]
     Route: 048
     Dates: start: 20090508, end: 20090508
  86. DEXAMETHASONE [Concomitant]
     Route: 048
     Dates: start: 20090508, end: 20090508
  87. DEXAMETHASONE [Concomitant]
     Route: 048
     Dates: start: 20090509, end: 20090509
  88. LENOGRASTIM [Concomitant]
     Dates: start: 20080602, end: 20080605
  89. LENOGRASTIM [Concomitant]
     Dates: start: 20080624, end: 20080627
  90. LENOGRASTIM [Concomitant]
     Dates: start: 20080723, end: 20080726
  91. LENOGRASTIM [Concomitant]
     Dates: start: 20080821, end: 20080823
  92. LENOGRASTIM [Concomitant]
     Dates: start: 20081001, end: 20081004
  93. LENOGRASTIM [Concomitant]
     Dates: start: 20081105, end: 20081108
  94. LENOGRASTIM [Concomitant]
     Dates: start: 20081210, end: 20081213
  95. LENOGRASTIM [Concomitant]
     Dates: start: 20090121, end: 20090124
  96. LENOGRASTIM [Concomitant]
     Dates: start: 20090225, end: 20090301
  97. LENOGRASTIM [Concomitant]
     Dates: start: 20090401, end: 20090405
  98. LENOGRASTIM [Concomitant]
     Dates: start: 20090515, end: 20090517
  99. ACETAMINOPHEN [Concomitant]
     Dates: start: 20080602, end: 20080604
  100. ACETAMINOPHEN [Concomitant]
     Dates: start: 20080712, end: 20080712
  101. ACETAMINOPHEN [Concomitant]
     Dates: start: 20080722, end: 20080812
  102. ACETAMINOPHEN [Concomitant]
     Dates: start: 20081209, end: 20081211
  103. ACETAMINOPHEN [Concomitant]
     Dates: start: 20090101, end: 20090101
  104. ACETAMINOPHEN [Concomitant]
     Dates: start: 20090122, end: 20090126
  105. ACETAMINOPHEN [Concomitant]
     Dates: start: 20090227, end: 20090227
  106. ACETAMINOPHEN [Concomitant]
     Dates: start: 20090513, end: 20090518
  107. ANTIBIOTICS-RESISTANT LACTIC ACID BACTERIAE [Concomitant]
     Dates: start: 20080603, end: 20080610
  108. ANTIBIOTICS-RESISTANT LACTIC ACID BACTERIAE [Concomitant]
     Dates: start: 20080626, end: 20080725
  109. ANTIBIOTICS-RESISTANT LACTIC ACID BACTERIAE [Concomitant]
     Dates: start: 20080811, end: 20080829
  110. ANTIBIOTICS-RESISTANT LACTIC ACID BACTERIAE [Concomitant]
     Dates: start: 20080912
  111. EPINEPHRINE [Concomitant]
     Dates: start: 20080603, end: 20080603
  112. EPINEPHRINE [Concomitant]
     Dates: start: 20080629, end: 20080703
  113. SODIUM LACTATE AND SORBITOL AND CALCIUM CHLORIDE DIHYDRATE AND POTASSI [Concomitant]
     Dates: start: 20080603, end: 20080608
  114. SODIUM LACTATE AND SORBITOL AND CALCIUM CHLORIDE DIHYDRATE AND POTASSI [Concomitant]
     Dates: start: 20080823, end: 20080823
  115. SODIUM LACTATE AND SORBITOL AND CALCIUM CHLORIDE DIHYDRATE AND POTASSI [Concomitant]
     Dates: start: 20081212, end: 20081214
  116. SODIUM LACTATE AND SORBITOL AND CALCIUM CHLORIDE DIHYDRATE AND POTASSI [Concomitant]
     Dates: start: 20090123, end: 20090123
  117. SODIUM LACTATE AND SORBITOL AND CALCIUM CHLORIDE DIHYDRATE AND POTASSI [Concomitant]
     Dates: start: 20090404, end: 20090404
  118. ZOLPIDEM TARTRATE [Concomitant]
     Dates: start: 20080604, end: 20080629
  119. ZOLPIDEM TARTRATE [Concomitant]
     Dates: start: 20080707, end: 20080708
  120. ZOLPIDEM TARTRATE [Concomitant]
     Dates: start: 20080715, end: 20080729
  121. ZOLPIDEM TARTRATE [Concomitant]
     Dates: start: 20080813, end: 20080826
  122. ZOLPIDEM TARTRATE [Concomitant]
     Dates: start: 20080916, end: 20080917
  123. ZOLPIDEM TARTRATE [Concomitant]
     Dates: start: 20080922, end: 20081110
  124. ZOLPIDEM TARTRATE [Concomitant]
     Dates: start: 20081203, end: 20081215
  125. ZOLPIDEM TARTRATE [Concomitant]
     Dates: start: 20090113, end: 20090128
  126. ZOLPIDEM TARTRATE [Concomitant]
     Dates: start: 20090217, end: 20090302
  127. ZOLPIDEM TARTRATE [Concomitant]
     Dates: start: 20090324, end: 20090402
  128. ZOLPIDEM TARTRATE [Concomitant]
     Dates: start: 20090506
  129. NIFEDIPINE [Concomitant]
     Route: 048
     Dates: start: 20080630, end: 20080630
  130. LEVOFLOXACIN [Concomitant]
     Dates: start: 20080723, end: 20080807
  131. ALBUMIN TANNATE [Concomitant]
     Dates: start: 20080822, end: 20080822
  132. SCOPOLAMINE BUTHYLBROMIDE [Concomitant]
     Dates: start: 20080823, end: 20080823
  133. FLUOCINOLONE ACETONIDE [Concomitant]
     Dates: start: 20081104, end: 20081104
  134. BETAMETHASONE VALERATE [Concomitant]
     Dates: start: 20081105, end: 20081108
  135. BETAMETHASONE VALERATE [Concomitant]
     Dates: start: 20081129, end: 20081129
  136. BETAMETHASONE VALERATE [Concomitant]
     Dates: start: 20081206, end: 20090302
  137. BETAMETHASONE VALERATE [Concomitant]
     Dates: start: 20090417
  138. LOPERAMIDE HYDROCHLORIDE [Concomitant]
     Dates: start: 20081031, end: 20081031
  139. LOPERAMIDE HYDROCHLORIDE [Concomitant]
     Dates: start: 20090123, end: 20090124
  140. LOPERAMIDE HYDROCHLORIDE [Concomitant]
     Dates: start: 20090404, end: 20090404
  141. LOPERAMIDE HYDROCHLORIDE [Concomitant]
     Dates: start: 20090516, end: 20090518
  142. CAFFEINE/PARACETAMOL/PROMETHAZINE METHYLENE DISALICYLATE/SALICYLAMIDE [Concomitant]
     Dates: start: 20081106, end: 20081110
  143. DIPHENHYDRAMINE HYDROCHLORIDE [Concomitant]
     Dates: start: 20081207, end: 20081209
  144. SOLITA-T 3G [Concomitant]
     Dates: start: 20080602, end: 20080608
  145. SOLITA-T 3G [Concomitant]
     Dates: start: 20090122, end: 20090126
  146. SOLITA-T 3G [Concomitant]
     Dates: start: 20090228, end: 20090301
  147. SOLITA-T 3G [Concomitant]
     Dates: start: 20090402, end: 20090407
  148. SOLITA-T 3G [Concomitant]
     Dates: start: 20090515
  149. CEFEPIME [Concomitant]
     Dates: start: 20080602, end: 20080608
  150. SALICYLIC ACID [Concomitant]
     Dates: start: 20090205, end: 20090211
  151. DOMPERIDONE [Concomitant]
     Dates: start: 20090125, end: 20090125

REACTIONS (1)
  - PNEUMOTHORAX [None]
